FAERS Safety Report 8093000-4 (Version None)
Quarter: 2012Q1

REPORT INFORMATION
  Report Type: 
  Country: None (occurrence: None)
  Receive Date: 20120128
  Receipt Date: 20110908
  Transmission Date: 20120608
  Serious: No
  Sender: FDA-Public Use
  Company Number: US-ABBOTT-09P-163-0570554-00

PATIENT
  Sex: Female

DRUGS (4)
  1. TWO DIFFERENT PROBIOTICS FROM MEDIGENICS [Concomitant]
     Indication: CROHN'S DISEASE
     Route: 048
  2. HUMIRA [Suspect]
     Dates: end: 20110808
  3. NEXIUM [Concomitant]
     Indication: CROHN'S DISEASE
  4. HUMIRA [Suspect]
     Indication: CROHN'S DISEASE
     Dates: start: 20080220

REACTIONS (7)
  - GINGIVAL BLEEDING [None]
  - GINGIVITIS [None]
  - FUNGAL SKIN INFECTION [None]
  - LYMPHADENOPATHY [None]
  - PRURITUS [None]
  - CANDIDIASIS [None]
  - ERYTHEMA [None]
